FAERS Safety Report 7306705-7 (Version None)
Quarter: 2011Q1

REPORT INFORMATION
  Report Type: 
  Country: None (occurrence: None)
  Receive Date: 20110222
  Receipt Date: 20110215
  Transmission Date: 20110831
  Serious: Yes (Hospitalization)
  Sender: FDA-Public Use
  Company Number: GR-BAXTER-2011BH003828

PATIENT
  Sex: Female
  Weight: 70 kg

DRUGS (2)
  1. GAMMAGARD LIQUID [Suspect]
     Indication: GUILLAIN-BARRE SYNDROME
     Route: 042
     Dates: start: 20110111, end: 20110115
  2. AMLOPIN [Concomitant]
     Indication: HYPERTENSION

REACTIONS (1)
  - HAEMOLYTIC ANAEMIA [None]
